FAERS Safety Report 9038201 (Version 1)
Quarter: 2013Q1

REPORT INFORMATION
  Report Type: Spontaneous
  Country: US (occurrence: US)
  Receive Date: 20130129
  Receipt Date: 20130129
  Transmission Date: 20140127
  Serious: No
  Sender: FDA-Public Use
  Company Number: US-GLAXOSMITHKLINE-A0981288A

PATIENT
  Age: 32 Year
  Sex: Female
  Weight: 110 kg

DRUGS (7)
  1. WELLBUTRIN [Suspect]
     Indication: PRODUCT USED FOR UNKNOWN INDICATION
     Route: 048
  2. IMITREX [Suspect]
     Indication: MIGRAINE
     Route: 065
  3. PENICILLIN [Suspect]
     Indication: PRODUCT USED FOR UNKNOWN INDICATION
     Route: 065
  4. BACTRIM [Suspect]
     Indication: PRODUCT USED FOR UNKNOWN INDICATION
     Route: 065
  5. SUMATRIPTAN [Suspect]
     Indication: MIGRAINE
     Dosage: 6MG UNKNOWN
     Route: 058
     Dates: start: 20120522, end: 20120522
  6. CYMBALTA [Concomitant]
  7. BISOPROLOL + HYDROCHLOROTHIAZIDE [Concomitant]

REACTIONS (6)
  - Drug hypersensitivity [Not Recovered/Not Resolved]
  - Urticaria [Unknown]
  - Dyspnoea [Unknown]
  - Migraine [Unknown]
  - Dizziness [Unknown]
  - Injection site pain [Unknown]
